FAERS Safety Report 12606691 (Version 2)
Quarter: 2016Q3

REPORT INFORMATION
  Report Type: Spontaneous
  Country: JP (occurrence: JP)
  Receive Date: 20160729
  Receipt Date: 20160820
  Transmission Date: 20161109
  Serious: Yes (Other)
  Sender: FDA-Public Use
  Company Number: JP-SUN PHARMACEUTICAL INDUSTRIES LTD-2016RR-121185

PATIENT
  Age: 61 Year
  Sex: Female

DRUGS (12)
  1. BEVACIZUMAB [Suspect]
     Active Substance: BEVACIZUMAB
     Indication: COLON CANCER
     Dosage: SECOND LINE THERAPY
     Route: 065
     Dates: start: 200905
  2. CETUXIMAB [Suspect]
     Active Substance: CETUXIMAB
     Indication: METASTASIS
     Dosage: THIRD-LINE THERAPY
     Route: 065
     Dates: start: 200908
  3. CETUXIMAB [Suspect]
     Active Substance: CETUXIMAB
     Indication: COLON CANCER
  4. BEVACIZUMAB [Suspect]
     Active Substance: BEVACIZUMAB
     Indication: METASTASIS
     Dosage: FIRST LINE THERAPY
     Route: 065
     Dates: start: 200804
  5. IRINOTECAN [Suspect]
     Active Substance: IRINOTECAN
     Indication: COLON CANCER
     Dosage: SECOND LINE THERAPY
     Route: 065
     Dates: start: 200905
  6. CALCIUM FOLINAT [Suspect]
     Active Substance: LEUCOVORIN CALCIUM
     Indication: COLON CANCER
     Dosage: FIRST LINE THERAPY
     Route: 065
     Dates: start: 200804
  7. IRINOTECAN [Suspect]
     Active Substance: IRINOTECAN
     Indication: METASTASIS
     Dosage: THIRD LINE THERAPY
     Route: 065
     Dates: start: 200908
  8. OXALIPLATIN. [Suspect]
     Active Substance: OXALIPLATIN
     Indication: METASTASIS
  9. OXALIPLATIN. [Suspect]
     Active Substance: OXALIPLATIN
     Indication: COLON CANCER
     Dosage: FIRST LINE THERAPY
     Route: 065
     Dates: start: 200804
  10. CALCIUM FOLINAT [Suspect]
     Active Substance: LEUCOVORIN CALCIUM
     Indication: METASTASIS
     Dosage: THIRD LINE THERAPY
     Route: 065
     Dates: start: 200905
  11. FLUOROURACIL. [Suspect]
     Active Substance: FLUOROURACIL
     Indication: COLON CANCER
     Dosage: 1000 MG/M2, 1/WEEK
     Route: 042
  12. FLUOROURACIL. [Suspect]
     Active Substance: FLUOROURACIL
     Indication: METASTASIS
     Dosage: FIRST AND SECOND LINE THERAPY
     Route: 065
     Dates: start: 200804

REACTIONS (5)
  - Disease progression [Unknown]
  - Malaise [Unknown]
  - Therapeutic response decreased [Unknown]
  - Anaemia [Unknown]
  - Performance status decreased [Unknown]
